FAERS Safety Report 23800100 (Version 2)
Quarter: 2024Q2

REPORT INFORMATION
  Report Type: Report from Study
  Country: US (occurrence: US)
  Receive Date: 20240430
  Receipt Date: 20240524
  Transmission Date: 20240715
  Serious: Yes (Death, Hospitalization, Other)
  Sender: FDA-Public Use
  Company Number: US-SA-SAC20240418001238

PATIENT
  Age: 12 Year
  Sex: Male

DRUGS (3)
  1. AVALGLUCOSIDASE ALFA-NGPT [Suspect]
     Active Substance: AVALGLUCOSIDASE ALFA-NGPT
     Indication: Glycogen storage disease type II
     Dosage: 1000 (UNITS NOT REPORTED), QOW
     Route: 042
     Dates: start: 20221020
  2. AVALGLUCOSIDASE ALFA-NGPT [Suspect]
     Active Substance: AVALGLUCOSIDASE ALFA-NGPT
     Dosage: 1000 MG, QOW
     Route: 042
     Dates: start: 202311, end: 20240422
  3. AVALGLUCOSIDASE ALFA-NGPT [Suspect]
     Active Substance: AVALGLUCOSIDASE ALFA-NGPT
     Dosage: 300 MG, QOW
     Route: 042

REACTIONS (4)
  - Cardiac arrest [Fatal]
  - Loss of consciousness [Fatal]
  - Brain injury [Fatal]
  - Respiratory disorder [Fatal]

NARRATIVE: CASE EVENT DATE: 20240415
